FAERS Safety Report 14379387 (Version 1)
Quarter: 2018Q1

REPORT INFORMATION
  Report Type: Spontaneous
  Country: US (occurrence: US)
  Receive Date: 20180112
  Receipt Date: 20180112
  Transmission Date: 20180509
  Serious: No
  Sender: FDA-Public Use
  Company Number: US-BIOGEN-2018BI00506900

PATIENT
  Age: 74 Year
  Sex: Female

DRUGS (1)
  1. ZINBRYTA [Suspect]
     Active Substance: DACLIZUMAB
     Indication: MULTIPLE SCLEROSIS
     Route: 058
     Dates: start: 20171204

REACTIONS (4)
  - Wrong technique in device usage process [Recovered/Resolved]
  - Accidental underdose [Recovered/Resolved]
  - Muscle spasticity [Recovered/Resolved with Sequelae]
  - Exposure via skin contact [Unknown]

NARRATIVE: CASE EVENT DATE: 20180104
